FAERS Safety Report 8057213-X (Version None)
Quarter: 2012Q1

REPORT INFORMATION
  Report Type: 
  Country: None (occurrence: None)
  Receive Date: 20120119
  Receipt Date: 20120105
  Transmission Date: 20120608
  Serious: Yes (Hospitalization, Other)
  Sender: FDA-Public Use
  Company Number: PHHY2012IT001304

PATIENT
  Age: 49 Year
  Sex: Male

DRUGS (9)
  1. BASILIXIMAB [Suspect]
     Indication: RENAL AND PANCREAS TRANSPLANT
     Dosage: 20 MG, UNK
  2. TACROLIMUS [Suspect]
     Indication: RENAL AND PANCREAS TRANSPLANT
     Dosage: 0.1 MG/KG, BID
  3. RALTEGRAVIR [Concomitant]
  4. STAVUDINE [Concomitant]
  5. EFAVIRENZ [Concomitant]
  6. MYCOPHENOLATE MOFETIL [Concomitant]
     Indication: RENAL AND PANCREAS TRANSPLANT
     Dosage: 1 G, BID
  7. LAMIVUDINE [Concomitant]
  8. PREDNISONE TAB [Concomitant]
     Indication: RENAL AND PANCREAS TRANSPLANT
     Dosage: 16 MG, UNK
     Route: 048
  9. METHYLPREDNISOLONE [Concomitant]
     Indication: RENAL AND PANCREAS TRANSPLANT
     Dosage: 125 MG, UNK
     Route: 042

REACTIONS (6)
  - TOXICITY TO VARIOUS AGENTS [None]
  - KIDNEY TRANSPLANT REJECTION [None]
  - ENTEROCOCCAL INFECTION [None]
  - HIV INFECTION [None]
  - WOUND INFECTION [None]
  - CHOLECYSTITIS [None]
